FAERS Safety Report 18872193 (Version 2)
Quarter: 2021Q2

REPORT INFORMATION
  Report Type: Spontaneous
  Country: US (occurrence: US)
  Receive Date: 20210210
  Receipt Date: 20210429
  Transmission Date: 20210717
  Serious: No
  Sender: FDA-Public Use
  Company Number: US-GLENMARK PHARMACEUTICALS-2021GMK051688

PATIENT

DRUGS (1)
  1. TACROLIMUS. [Suspect]
     Active Substance: TACROLIMUS
     Indication: PUSTULAR PSORIASIS
     Dosage: UNK, BID (2X A DAY)
     Route: 065
     Dates: start: 20201205, end: 20201213

REACTIONS (3)
  - Drug ineffective for unapproved indication [Unknown]
  - Condition aggravated [Recovered/Resolved]
  - Pustular psoriasis [Recovered/Resolved]

NARRATIVE: CASE EVENT DATE: 202012
